FAERS Safety Report 19557480 (Version 2)
Quarter: 2022Q1

REPORT INFORMATION
  Report Type: Spontaneous
  Country: US (occurrence: US)
  Receive Date: 20210715
  Receipt Date: 20220221
  Transmission Date: 20220424
  Serious: No
  Sender: FDA-Public Use
  Company Number: US-GSKCCFUS-CASE-01108358_AE-65332

PATIENT
  Sex: Female

DRUGS (1)
  1. BENLYSTA [Suspect]
     Active Substance: BELIMUMAB
     Indication: Systemic lupus erythematosus
     Dosage: 120 MG, Z:EVERY 4 WEEKS
     Dates: start: 2016

REACTIONS (6)
  - Hot flush [Recovered/Resolved]
  - Condition aggravated [Recovered/Resolved]
  - Hyperhidrosis [Recovered/Resolved]
  - Hair texture abnormal [Recovered/Resolved]
  - Burning sensation [Unknown]
  - Product dose omission issue [Unknown]
